FAERS Safety Report 18462239 (Version 1)
Quarter: 2020Q4

REPORT INFORMATION
  Report Type: Spontaneous
  Country: US (occurrence: US)
  Receive Date: 20201103
  Receipt Date: 20201103
  Transmission Date: 20210114
  Serious: Yes (Other)
  Sender: FDA-Public Use
  Company Number: None

PATIENT
  Sex: Female

DRUGS (1)
  1. TACROLIMUS 0.1 % OINT TIER-3 [Suspect]
     Active Substance: TACROLIMUS

REACTIONS (1)
  - Drug ineffective [None]
